FAERS Safety Report 18874479 (Version 2)
Quarter: 2021Q1

REPORT INFORMATION
  Report Type: Spontaneous
  Country: GB (occurrence: GB)
  Receive Date: 20210211
  Receipt Date: 20210217
  Transmission Date: 20210420
  Serious: Yes (Other)
  Sender: FDA-Public Use
  Company Number: GB-SUN PHARMACEUTICAL INDUSTRIES LTD-2021RR-280183

PATIENT
  Age: 29 Year
  Sex: Male
  Weight: 92 kg

DRUGS (2)
  1. CODEINE [Suspect]
     Active Substance: CODEINE
     Indication: FRACTURE
     Dosage: 15 MILLIGRAM, UNK
     Route: 048
     Dates: start: 20200420
  2. TRUVADA [Interacting]
     Active Substance: EMTRICITABINE\TENOFOVIR DISOPROXIL FUMARATE
     Indication: PROPHYLAXIS AGAINST HIV INFECTION
     Dosage: PREP
     Route: 065

REACTIONS (4)
  - Thinking abnormal [Not Recovered/Not Resolved]
  - Obsessive-compulsive disorder [Unknown]
  - Confusional state [Unknown]
  - Drug interaction [Unknown]
